FAERS Safety Report 6557551-3 (Version None)
Quarter: 2010Q1

REPORT INFORMATION
  Report Type: 
  Country: None (occurrence: None)
  Receive Date: 20100129
  Receipt Date: 20100119
  Transmission Date: 20100710
  Serious: Yes (Hospitalization)
  Sender: FDA-Public Use
  Company Number: US-MYLANLABS-2010S1000369

PATIENT
  Age: 69 Year
  Sex: Female
  Weight: 71.67 kg

DRUGS (15)
  1. PINDOLOL [Suspect]
     Indication: HYPERTENSION
     Dates: start: 20090501, end: 20091102
  2. CELEBOXIB;IBUPROFEN NAPEROXEN;PLACEBO [Suspect]
     Indication: RHEUMATOID ARTHRITIS
     Route: 048
     Dates: start: 20080731
  3. CELEBOXIB;IBUPROFEN NAPEROXEN;PLACEBO [Suspect]
     Indication: OSTEOARTHRITIS
     Route: 048
     Dates: start: 20080731
  4. NEXIUM [Concomitant]
     Dates: start: 20050901
  5. ALENDRONIC ACID [Concomitant]
     Dates: start: 20020314
  6. VITAMIN C [Concomitant]
     Dates: start: 20040505
  7. ACETYLSALICYLIC ACID [Concomitant]
     Dates: start: 20050921
  8. CALCIUM CARBONATE W/VITAMIN D /00944201/ [Concomitant]
     Dates: start: 20050921
  9. FISH OIL [Concomitant]
     Dates: start: 20040601
  10. PREMARIN [Concomitant]
     Dates: start: 20020314
  11. SYNTHROID [Concomitant]
     Dates: start: 20020314
  12. VITAMIN B-12 [Concomitant]
     Dates: start: 20080917
  13. METHOTREXATE [Concomitant]
     Dates: start: 20090422
  14. LISINOPRIL [Concomitant]
     Dates: start: 20090501
  15. FOLIC ACID [Concomitant]
     Dates: start: 20081001

REACTIONS (2)
  - HYPOTENSION [None]
  - INTERVERTEBRAL DISC DEGENERATION [None]
